FAERS Safety Report 16993786 (Version 1)
Quarter: 2019Q4

REPORT INFORMATION
  Report Type: Spontaneous
  Country: CN (occurrence: CN)
  Receive Date: 20191105
  Receipt Date: 20191105
  Transmission Date: 20200122
  Serious: Yes (Other)
  Sender: FDA-Public Use
  Company Number: CN-PFIZER INC-2019474600

PATIENT
  Age: 61 Year
  Sex: Female
  Weight: 65 kg

DRUGS (8)
  1. METHOTREXATE. [Suspect]
     Active Substance: METHOTREXATE
     Indication: B-CELL LYMPHOMA
     Dosage: 0.5 G, 1X/DAY
     Route: 041
     Dates: start: 20191018, end: 20191018
  2. SODIUM CHLORIDE. [Concomitant]
     Active Substance: SODIUM CHLORIDE
     Dosage: 500 ML, 2X/DAY
     Route: 041
     Dates: start: 20191018, end: 20191018
  3. METHOTREXATE. [Suspect]
     Active Substance: METHOTREXATE
     Dosage: 1.3 G, 1X/DAY
     Route: 041
     Dates: start: 20191018, end: 20191018
  4. SODIUM CHLORIDE. [Concomitant]
     Active Substance: SODIUM CHLORIDE
     Dosage: 100 ML, 1X/DAY
     Route: 041
     Dates: start: 20191018, end: 20191018
  5. METHOTREXATE. [Suspect]
     Active Substance: METHOTREXATE
     Indication: B-CELL LYMPHOMA
     Dosage: 10 MG, 1X/DAY
     Route: 037
     Dates: start: 20191018, end: 20191018
  6. METHOTREXATE. [Suspect]
     Active Substance: METHOTREXATE
     Dosage: 1.4 G, 2X/DAY
     Route: 041
     Dates: start: 20191018, end: 20191018
  7. SODIUM CHLORIDE. [Concomitant]
     Active Substance: SODIUM CHLORIDE
     Indication: VEHICLE SOLUTION USE
     Dosage: 10 ML, 1X/DAY
     Route: 037
     Dates: start: 20191018, end: 20191019
  8. SODIUM CHLORIDE. [Concomitant]
     Active Substance: SODIUM CHLORIDE
     Dosage: 500 ML, 1X/DAY
     Route: 041
     Dates: start: 20191018, end: 20191018

REACTIONS (3)
  - Restlessness [Recovering/Resolving]
  - Asthenia [Recovering/Resolving]
  - Drug level increased [Recovering/Resolving]

NARRATIVE: CASE EVENT DATE: 20191018
